FAERS Safety Report 15136707 (Version 1)
Quarter: 2018Q3

REPORT INFORMATION
  Report Type: Spontaneous
  Country: AT (occurrence: AT)
  Receive Date: 20180712
  Receipt Date: 20180712
  Transmission Date: 20181010
  Serious: Yes (Hospitalization)
  Sender: FDA-Public Use
  Company Number: AT-US WORLDMEDS, LLC-STA_00017550

PATIENT
  Sex: Female
  Weight: 65 kg

DRUGS (14)
  1. FERRETAB [Concomitant]
     Indication: PRODUCT USED FOR UNKNOWN INDICATION
  2. SEROQUEL [Concomitant]
     Active Substance: QUETIAPINE FUMARATE
     Indication: PRODUCT USED FOR UNKNOWN INDICATION
  3. TRITTICO 150 MG [Concomitant]
     Indication: PRODUCT USED FOR UNKNOWN INDICATION
  4. APOMORPHINE HYDROCHLORIDE [Suspect]
     Active Substance: APOMORPHINE HYDROCHLORIDE
     Indication: PARKINSON^S DISEASE
     Dosage: FROM 7.00 AM UNTIL 08.00 PM, NO BOLUS
     Route: 058
     Dates: start: 20150504
  5. MOLAXOLE BAG [Concomitant]
     Indication: PRODUCT USED FOR UNKNOWN INDICATION
  6. MADOPAR 100/25MG [Concomitant]
     Indication: PRODUCT USED FOR UNKNOWN INDICATION
     Dosage: 2X1 TBL/D 2X11/2 TBL/D
  7. CYMBALTA [Concomitant]
     Active Substance: DULOXETINE HYDROCHLORIDE
     Indication: PRODUCT USED FOR UNKNOWN INDICATION
  8. OLEOVIT GTT [Concomitant]
     Indication: PRODUCT USED FOR UNKNOWN INDICATION
  9. EUTHYROX 75 [Concomitant]
     Active Substance: LEVOTHYROXINE SODIUM
     Indication: PRODUCT USED FOR UNKNOWN INDICATION
  10. MADOPAR CR 100/25MG [Concomitant]
     Indication: PRODUCT USED FOR UNKNOWN INDICATION
  11. MAXIKALC 500MG [Concomitant]
     Indication: PRODUCT USED FOR UNKNOWN INDICATION
  12. EXELON TTS 4,6MG [Concomitant]
     Indication: PRODUCT USED FOR UNKNOWN INDICATION
     Route: 062
  13. ACEMIN 5MG [Concomitant]
     Active Substance: LISINOPRIL
     Indication: PRODUCT USED FOR UNKNOWN INDICATION
  14. PANTOLOC 20MG [Concomitant]
     Indication: PRODUCT USED FOR UNKNOWN INDICATION

REACTIONS (5)
  - Injection site nodule [Not Recovered/Not Resolved]
  - Apathy [Recovered/Resolved]
  - Hallucination [Recovered/Resolved]
  - Delusion [Recovered/Resolved]
  - Feeling abnormal [Recovered/Resolved]
